FAERS Safety Report 17003386 (Version 4)
Quarter: 2019Q4

REPORT INFORMATION
  Report Type: Spontaneous
  Country: CA (occurrence: CA)
  Receive Date: 20191107
  Receipt Date: 20191227
  Transmission Date: 20200122
  Serious: Yes (Other)
  Sender: FDA-Public Use
  Company Number: CA-CELLTRION INC.-2019CA023289

PATIENT

DRUGS (9)
  1. INFLECTRA [Suspect]
     Active Substance: INFLIXIMAB-DYYB
     Indication: CROHN^S DISEASE
     Dosage: 1000 MG, AT 0, 2, 6, THEN EVERY 4 WEEKS
     Route: 042
     Dates: start: 20190912
  2. INFLECTRA [Suspect]
     Active Substance: INFLIXIMAB-DYYB
     Dosage: 1000 MG, AT 0, 2, 6, THEN EVERY 4 WEEKS
     Route: 042
     Dates: start: 20191024
  3. PERCOCET [OXYCODONE HYDROCHLORIDE;OXYCODONE TEREPHTHALATE;PARACETAMOL] [Concomitant]
     Active Substance: ACETAMINOPHEN\OXYCODONE HYDROCHLORIDE\OXYCODONE TEREPHTHALATE
     Dosage: UNK
     Route: 065
  4. PREDNISONE. [Concomitant]
     Active Substance: PREDNISONE
     Dosage: 20 MG, UNK(Q)
     Route: 065
     Dates: start: 20191001
  5. BENADRYL [Concomitant]
     Active Substance: DIPHENHYDRAMINE HYDROCHLORIDE
     Dosage: UNK
  6. INFLECTRA [Suspect]
     Active Substance: INFLIXIMAB-DYYB
     Dosage: 1000 MG, AT 0, 2, 6, THEN EVERY 4 WEEKS
     Route: 042
     Dates: start: 20190927
  7. STELARA [Concomitant]
     Active Substance: USTEKINUMAB
     Dosage: 90 MG, EVERY 4 WEEKS
     Route: 065
     Dates: start: 201712
  8. METHOTREXATE. [Concomitant]
     Active Substance: METHOTREXATE
     Dosage: 12.5 MG, WEEKLY
     Route: 065
  9. MORPHINE [Concomitant]
     Active Substance: MORPHINE
     Dosage: 30 DF, UNK
     Route: 048

REACTIONS (10)
  - Back pain [Unknown]
  - Off label use [Unknown]
  - Drug specific antibody absent [Unknown]
  - Inappropriate schedule of product administration [Unknown]
  - Peripheral swelling [Not Recovered/Not Resolved]
  - Arthralgia [Unknown]
  - Condition aggravated [Unknown]
  - Drug level below therapeutic [Unknown]
  - Pain [Not Recovered/Not Resolved]
  - Musculoskeletal pain [Unknown]

NARRATIVE: CASE EVENT DATE: 20190926
